FAERS Safety Report 5094193-3 (Version None)
Quarter: 2006Q3

REPORT INFORMATION
  Report Type: 
  Country: None (occurrence: None)
  Receive Date: 20060831
  Receipt Date: 20060711
  Transmission Date: 20061208
  Serious: Yes (Other)
  Sender: FDA-Public Use
  Company Number: PHEH2006US08927

PATIENT
  Age: 64 Year
  Sex: Female

DRUGS (6)
  1. ZOMETA [Suspect]
     Indication: METASTASES TO BONE
     Dosage: 4 MG EVERY FOUR WEEKS
     Dates: start: 20030701
  2. ALOXI [Concomitant]
  3. HERCEPTIN ^HOFFMANN-LA ROCHE^ [Concomitant]
  4. NAVELBINE [Concomitant]
  5. ARANESP [Concomitant]
  6. NEULASTA [Concomitant]

REACTIONS (8)
  - CHAPPED LIPS [None]
  - DEHYDRATION [None]
  - ERYTHEMA [None]
  - LIP PAIN [None]
  - MUCOSAL INFLAMMATION [None]
  - ORAL INTAKE REDUCED [None]
  - RHINALGIA [None]
  - STOMATITIS [None]
